FAERS Safety Report 14175104 (Version 1)
Quarter: 2017Q4

REPORT INFORMATION
  Report Type: Report from Study
  Country: US (occurrence: US)
  Receive Date: 20171109
  Receipt Date: 20171109
  Transmission Date: 20180321
  Serious: Yes (Other)
  Sender: FDA-Public Use
  Company Number: US-JNJFOC-20171027867

PATIENT
  Age: 8 Year
  Sex: Male
  Weight: 35 kg

DRUGS (4)
  1. CONCERTA [Concomitant]
     Active Substance: METHYLPHENIDATE HYDROCHLORIDE
     Indication: ATTENTION DEFICIT/HYPERACTIVITY DISORDER
     Route: 065
     Dates: start: 20170726
  2. OMEPRAZOLE. [Concomitant]
     Active Substance: OMEPRAZOLE
     Indication: PEPTIC ULCER
     Route: 065
     Dates: start: 20170226
  3. ACYCLOVIR. [Concomitant]
     Active Substance: ACYCLOVIR
     Indication: HERPES SIMPLEX
     Route: 065
     Dates: start: 20170726
  4. REMICADE [Suspect]
     Active Substance: INFLIXIMAB
     Indication: CROHN^S DISEASE
     Route: 042

REACTIONS (6)
  - Drug specific antibody present [Unknown]
  - Abdominal pain [Unknown]
  - Off label use [Unknown]
  - Product use issue [Unknown]
  - Haematochezia [Unknown]
  - Drug level decreased [Unknown]

NARRATIVE: CASE EVENT DATE: 20171020
